FAERS Safety Report 14176134 (Version 6)
Quarter: 2019Q3

REPORT INFORMATION
  Report Type: Spontaneous
  Country: US (occurrence: US)
  Receive Date: 20171109
  Receipt Date: 20190927
  Transmission Date: 20191004
  Serious: Yes (Death, Life-Threatening, Hospitalization, Disabling)
  Sender: FDA-Public Use
  Company Number: US-ACTELION-A-NJ2017-162036

PATIENT
  Age: 89 Year
  Sex: Female

DRUGS (1)
  1. OPSUMIT [Suspect]
     Active Substance: MACITENTAN
     Indication: PULMONARY ARTERIAL HYPERTENSION
     Dosage: 10 MG, QD
     Route: 048
     Dates: start: 20140328

REACTIONS (13)
  - Pyrexia [Unknown]
  - Dyspnoea [Unknown]
  - Peripheral vascular disorder [Unknown]
  - Pruritus [Unknown]
  - Product dose omission [Not Recovered/Not Resolved]
  - Nasopharyngitis [Unknown]
  - Tremor [Unknown]
  - Respiratory tract infection viral [Unknown]
  - Influenza [Unknown]
  - Cough [Unknown]
  - Peripheral swelling [Not Recovered/Not Resolved]
  - Pneumonia [Unknown]
  - Death [Fatal]

NARRATIVE: CASE EVENT DATE: 20180418
